FAERS Safety Report 19194416 (Version 1)
Quarter: 2021Q2

REPORT INFORMATION
  Report Type: Spontaneous
  Country: US (occurrence: US)
  Receive Date: 20210429
  Receipt Date: 20210429
  Transmission Date: 20210717
  Serious: Yes (Hospitalization, Other)
  Sender: FDA-Public Use
  Company Number: US-PFIZER INC-2021439879

PATIENT
  Age: 24 Month
  Sex: Male

DRUGS (9)
  1. VINCRISTINE SULFATE. [Suspect]
     Active Substance: VINCRISTINE SULFATE
     Indication: NEUROBLASTOMA
     Dosage: UNK, CYCLIC (INDUCTION CYCLE 4)
  2. CISPLATIN. [Suspect]
     Active Substance: CISPLATIN
     Indication: NEUROBLASTOMA
     Dosage: UNK, CYCLIC (INDUCTION CYCLE 5)
  3. MESNA. [Suspect]
     Active Substance: MESNA
     Indication: NEUROBLASTOMA
     Dosage: UNK, CYCLIC (INDUCTION CYCLE 4)
  4. DEXRAZOXANE. [Suspect]
     Active Substance: DEXRAZOXANE
     Indication: NEUROBLASTOMA
     Dosage: UNK, CYCLIC (INDUCTION CYCLE 4)
  5. DOXORUBICIN HCL [Suspect]
     Active Substance: DOXORUBICIN HYDROCHLORIDE
     Indication: NEUROBLASTOMA
     Dosage: UNK, CYCLIC (INDUCTION CYCLE 4)
  6. UNITUXIN [Suspect]
     Active Substance: DINUTUXIMAB
     Indication: NEUROBLASTOMA
     Dosage: UNK, CYCLIC
     Route: 041
  7. ETOPOSIDE. [Suspect]
     Active Substance: ETOPOSIDE
     Indication: NEUROBLASTOMA
     Dosage: UNK, CYCLIC (INDUCTION CYCLE 5)
  8. SARGRAMOSTIM [Suspect]
     Active Substance: SARGRAMOSTIM
     Indication: NEUROBLASTOMA
     Dosage: UNK, CYCLIC (INDUCTION CYCLE 4)
  9. CYCLOPHOSPHAMIDE. [Suspect]
     Active Substance: CYCLOPHOSPHAMIDE
     Indication: NEUROBLASTOMA
     Dosage: UNK, CYCLIC (INDUCTION CYCLE 4)

REACTIONS (4)
  - Drug hypersensitivity [Unknown]
  - Hypotension [Unknown]
  - Pyrexia [Unknown]
  - Off label use [Unknown]
